FAERS Safety Report 25773238 (Version 1)
Quarter: 2025Q3

REPORT INFORMATION
  Report Type: Spontaneous
  Country: US (occurrence: None)
  Receive Date: 20250905
  Receipt Date: 20250905
  Transmission Date: 20251021
  Serious: No
  Sender: FDA-CTU
  Company Number: None

PATIENT
  Age: 69 Year
  Sex: Female
  Weight: 84.37 kg

DRUGS (18)
  1. NITROFURANTOIN MONOHYDRATE MACROCRYSTALS [Suspect]
     Active Substance: NITROFURANTOIN\NITROFURANTOIN MONOHYDRATE
     Indication: Cystitis
     Route: 048
     Dates: start: 20250623, end: 20250630
  2. Losartan w/potassium 100mg day [Concomitant]
  3. Hydrochlorothiazide 12.5mg/day [Concomitant]
  4. Vit D3 5000 IU/Day [Concomitant]
  5. Calcium 750 mg w/D335 mcg (200 IU) day [Concomitant]
  6. Biotin 10,000 mcg/day [Concomitant]
  7. Magnesium 200mg/day [Concomitant]
  8. Milk of Magnesium 1 tablespoon/day [Concomitant]
  9. Collagen Gummies 1.2 1/2 g/day [Concomitant]
  10. Omega 3 500mg/day [Concomitant]
  11. cyclobenzaprine 10mg PRN (Only at night if needed Rarely Use [Concomitant]
  12. Gabapentin 100-300 PRN (ONLY @ NIGHT IF NEEDED) Rarely use [Concomitant]
  13. Cane and Walker [Concomitant]
  14. Knee Braces, sometimes [Concomitant]
  15. Propel Electrolytes (powder) PRN [Concomitant]
  16. aSPIRIN 325 MG prn [Concomitant]
  17. TYLENOL [Concomitant]
     Active Substance: ACETAMINOPHEN
  18. Iron Tues, Thurs,Sat (3x wk) started after this incident [Concomitant]

REACTIONS (18)
  - Diarrhoea [None]
  - Abdominal pain [None]
  - Night sweats [None]
  - Feeling cold [None]
  - Rhinorrhoea [None]
  - Cough [None]
  - Dehydration [None]
  - Oral pain [None]
  - Pain in extremity [None]
  - Rhinalgia [None]
  - Lip pain [None]
  - Decreased appetite [None]
  - Anhedonia [None]
  - Autophony [None]
  - Tremor [None]
  - Micturition urgency [None]
  - Pyrexia [None]
  - Pain in extremity [None]

NARRATIVE: CASE EVENT DATE: 20250626
